FAERS Safety Report 23667010 (Version 1)
Quarter: 2024Q1

REPORT INFORMATION
  Report Type: Other
  Country: CA (occurrence: CA)
  Receive Date: 20240325
  Receipt Date: 20240325
  Transmission Date: 20240410
  Serious: Yes (Hospitalization, Other)
  Sender: FDA-Public Use
  Company Number: CA-Appco Pharma LLC-2154767

PATIENT
  Age: 65 Year
  Sex: Male

DRUGS (3)
  1. DOXYCYCLINE [Suspect]
     Active Substance: DOXYCYCLINE
     Indication: Blastomycosis
     Route: 065
  2. MOXIFLOXACIN [Suspect]
     Active Substance: MOXIFLOXACIN
     Route: 065
  3. BENRALIZUMAB [Concomitant]
     Active Substance: BENRALIZUMAB
     Route: 065

REACTIONS (1)
  - Drug ineffective [Unknown]
